FAERS Safety Report 6164406-5 (Version None)
Quarter: 2009Q2

REPORT INFORMATION
  Report Type: 
  Country: None (occurrence: None)
  Receive Date: 20090422
  Receipt Date: 20090126
  Transmission Date: 20091009
  Serious: Yes (Hospitalization)
  Sender: FDA-Public Use
  Company Number: US-MERCK-0901USA03676

PATIENT
  Age: 45 Year
  Sex: Female

DRUGS (2)
  1. JANUVIA [Suspect]
     Indication: DIABETES MELLITUS
     Route: 048
  2. LEVEMIR [Concomitant]
     Route: 065

REACTIONS (2)
  - ADVERSE EVENT [None]
  - BLOOD GLUCOSE FLUCTUATION [None]
